FAERS Safety Report 14076204 (Version 1)
Quarter: 2017Q4

REPORT INFORMATION
  Report Type: Spontaneous
  Country: JP (occurrence: JP)
  Receive Date: 20171011
  Receipt Date: 20171011
  Transmission Date: 20180321
  Serious: Yes (Hospitalization)
  Sender: FDA-Public Use
  Company Number: JP-DSJP-DSJ-2017-114426

PATIENT

DRUGS (3)
  1. FEBUXOSTAT. [Concomitant]
     Active Substance: FEBUXOSTAT
     Indication: HYPERURICAEMIA
     Dosage: UNK
     Route: 065
  2. REZALTAS COMBINATION TABLETS HD [Suspect]
     Active Substance: AZELNIDIPINE\OLMESARTAN MEDOXOMIL
     Indication: HYPERTENSION
     Dosage: UNK
     Route: 065
     Dates: start: 201510, end: 201603
  3. OLMETEC [Suspect]
     Active Substance: OLMESARTAN MEDOXOMIL
     Indication: HYPERTENSION
     Dosage: UNK
     Route: 048
     Dates: end: 201510

REACTIONS (4)
  - Urinary tract infection [Unknown]
  - Malabsorption [Recovered/Resolved]
  - Blood pressure decreased [Recovering/Resolving]
  - Autoimmune hepatitis [Unknown]

NARRATIVE: CASE EVENT DATE: 201510
